FAERS Safety Report 6744427-1 (Version None)
Quarter: 2010Q2

REPORT INFORMATION
  Report Type: 
  Country: None (occurrence: None)
  Receive Date: 20100527
  Receipt Date: 20100518
  Transmission Date: 20101027
  Serious: Yes (Other)
  Sender: FDA-Public Use
  Company Number: US-PFIZER INC-2010045564

PATIENT
  Age: 48 Year
  Sex: Female

DRUGS (5)
  1. CHANTIX [Suspect]
     Indication: SMOKING CESSATION THERAPY
     Dosage: 0.5 MG, 1X/DAY
     Route: 048
     Dates: start: 20100323
  2. CHANTIX [Suspect]
     Dosage: 1 MG, 2X/DAY
     Route: 048
     Dates: end: 20100406
  3. PROGESTERONE [Concomitant]
     Indication: HORMONE THERAPY
     Dosage: 200 MG, 1X/DAY
     Route: 048
  4. SERZONE [Concomitant]
     Indication: DEPRESSION
     Dosage: 500 MG, 1X/DAY
     Route: 048
  5. ALPRAZOLAM [Concomitant]

REACTIONS (5)
  - COGNITIVE DISORDER [None]
  - DISTURBANCE IN ATTENTION [None]
  - INSOMNIA [None]
  - NERVOUSNESS [None]
  - NIGHTMARE [None]
